FAERS Safety Report 9882732 (Version 1)
Quarter: 2014Q1

REPORT INFORMATION
  Report Type: Spontaneous
  Country: US (occurrence: US)
  Receive Date: 20140207
  Receipt Date: 20140207
  Transmission Date: 20141002
  Serious: No
  Sender: FDA-Public Use
  Company Number: US-BAXTER-2014BAX003597

PATIENT
  Age: 52 Year
  Sex: Male

DRUGS (1)
  1. GAMMAGARD LIQUID [Suspect]
     Indication: GUILLAIN-BARRE SYNDROME
     Route: 065

REACTIONS (4)
  - Palpitations [Unknown]
  - Burning sensation [Unknown]
  - Tremor [Unknown]
  - Pyrexia [Unknown]
